FAERS Safety Report 8050216-0 (Version None)
Quarter: 2012Q1

REPORT INFORMATION
  Report Type: 
  Country: None (occurrence: None)
  Receive Date: 20120117
  Receipt Date: 20120110
  Transmission Date: 20120608
  Serious: Yes (Other)
  Sender: FDA-Public Use
  Company Number: PHHY2012US002051

PATIENT
  Age: 19 Year
  Sex: Male

DRUGS (1)
  1. METOCLOPRAMIDE [Suspect]

REACTIONS (9)
  - PHAEOCHROMOCYTOMA [None]
  - ADRENAL MASS [None]
  - ACUTE PULMONARY OEDEMA [None]
  - CARDIOMYOPATHY [None]
  - CARDIOGENIC SHOCK [None]
  - EJECTION FRACTION DECREASED [None]
  - DYSPNOEA [None]
  - HYPOTENSION [None]
  - BLOOD PRESSURE INCREASED [None]
